FAERS Safety Report 6955782-1 (Version None)
Quarter: 2010Q3

REPORT INFORMATION
  Report Type: 
  Country: None (occurrence: None)
  Receive Date: 20100826
  Receipt Date: 20100826
  Transmission Date: 20110219
  Serious: Yes (Other)
  Sender: FDA-Public Use
  Company Number: None

PATIENT
  Sex: Female
  Weight: 50.2132 kg

DRUGS (2)
  1. ACETADOTE [Suspect]
     Indication: OVERDOSE
     Dosage: 8000MG ONCE IV
     Route: 042
     Dates: start: 20100822, end: 20100822
  2. ATIVAN [Concomitant]

REACTIONS (3)
  - DYSPNOEA [None]
  - LIP SWELLING [None]
  - WHEEZING [None]
